FAERS Safety Report 12932746 (Version 2)
Quarter: 2016Q4

REPORT INFORMATION
  Report Type: Spontaneous
  Country: US (occurrence: US)
  Receive Date: 20161111
  Receipt Date: 20161118
  Transmission Date: 20170207
  Serious: Yes (Other)
  Sender: FDA-Public Use
  Company Number: US-ASTELLAS-2016US043562

PATIENT
  Sex: Male

DRUGS (3)
  1. AMBISOME [Suspect]
     Active Substance: AMPHOTERICIN B
     Indication: MUCORMYCOSIS
     Route: 042
     Dates: start: 20160929
  2. AMBISOME [Suspect]
     Active Substance: AMPHOTERICIN B
     Indication: WHITE BLOOD CELL DISORDER
     Route: 042
  3. AMBISOME [Suspect]
     Active Substance: AMPHOTERICIN B
     Indication: WHITE BLOOD CELL COUNT INCREASED

REACTIONS (2)
  - Leg amputation [Unknown]
  - Off label use [Unknown]
